FAERS Safety Report 26054281 (Version 1)
Quarter: 2025Q4

REPORT INFORMATION
  Report Type: Spontaneous
  Country: EU (occurrence: EU)
  Receive Date: 20251117
  Receipt Date: 20251117
  Transmission Date: 20260119
  Serious: Yes (Other)
  Sender: ASCEND THERAPEUTICS US, LLC
  Company Number: EU-Ascend Therapeutics US, LLC-2188691

PATIENT
  Sex: Female

DRUGS (7)
  1. ESTROGEL [Suspect]
     Active Substance: ESTRADIOL
     Indication: Menopause
     Dates: start: 202410, end: 202501
  2. UTROGESTAN [Suspect]
     Active Substance: PROGESTERONE
     Dates: start: 202410, end: 2024
  3. ESTRADIOL [Suspect]
     Active Substance: ESTRADIOL
     Dates: start: 202501
  4. ESTRADIOL [Suspect]
     Active Substance: ESTRADIOL
     Dates: start: 202410, end: 202501
  5. UTROGESTAN [Suspect]
     Active Substance: PROGESTERONE
     Dates: start: 2025
  6. UTROGESTAN [Suspect]
     Active Substance: PROGESTERONE
     Dates: start: 202412, end: 2025
  7. UTROGESTAN [Suspect]
     Active Substance: PROGESTERONE
     Dates: start: 2024, end: 2024

REACTIONS (13)
  - Postmenopausal haemorrhage [Unknown]
  - Drug delivery system malfunction [Unknown]
  - Incorrect dose administered [Unknown]
  - Wrong technique in product usage process [Unknown]
  - Arthralgia [Unknown]
  - Blood oestrogen increased [Unknown]
  - Depressed mood [Unknown]
  - Pruritus [Unknown]
  - Fungal skin infection [Unknown]
  - Gastritis [Unknown]
  - Dry mouth [Unknown]
  - Hormone level abnormal [Unknown]
  - Graves^ disease [Unknown]

NARRATIVE: CASE EVENT DATE: 20240101
